FAERS Safety Report 12979192 (Version 1)
Quarter: 2016Q4

REPORT INFORMATION
  Report Type: Spontaneous
  Country: US (occurrence: US)
  Receive Date: 20161128
  Receipt Date: 20161128
  Transmission Date: 20170207
  Serious: Yes (Other)
  Sender: FDA-Public Use
  Company Number: US-ELI_LILLY_AND_COMPANY-US201611009071

PATIENT
  Sex: Male
  Weight: 90.7 kg

DRUGS (9)
  1. HUMULIN N [Suspect]
     Active Substance: INSULIN HUMAN
     Indication: TYPE 2 DIABETES MELLITUS
     Dosage: 25 U, TID
     Route: 065
     Dates: start: 2003
  2. ALLOPURINOL. [Concomitant]
     Active Substance: ALLOPURINOL
  3. TACROLIMUS. [Concomitant]
     Active Substance: TACROLIMUS
  4. CELLCEPT [Concomitant]
     Active Substance: MYCOPHENOLATE MOFETIL\MYCOPHENOLATE MOFETIL HYDROCHLORIDE
  5. ATORVASTATIN [Concomitant]
     Active Substance: ATORVASTATIN
  6. HUMULIN R [Suspect]
     Active Substance: INSULIN HUMAN
     Indication: TYPE 2 DIABETES MELLITUS
     Dosage: 25 U, TID
     Route: 065
     Dates: start: 2003
  7. MULTI-VIT [Concomitant]
     Active Substance: VITAMINS
  8. NORVASC [Concomitant]
     Active Substance: AMLODIPINE BESYLATE
  9. CAPTOPRIL. [Concomitant]
     Active Substance: CAPTOPRIL

REACTIONS (5)
  - Blood creatinine increased [Unknown]
  - Hyperhidrosis [Unknown]
  - Malaise [Unknown]
  - Dizziness [Unknown]
  - Blood creatinine increased [Unknown]

NARRATIVE: CASE EVENT DATE: 2003
